FAERS Safety Report 18761780 (Version 1)
Quarter: 2021Q1

REPORT INFORMATION
  Report Type: Spontaneous
  Country: US (occurrence: US)
  Receive Date: 20210119
  Receipt Date: 20210119
  Transmission Date: 20210419
  Serious: No
  Sender: FDA-Public Use
  Company Number: None

PATIENT
  Age: 73 Year
  Sex: Male
  Weight: 81.64 kg

DRUGS (9)
  1. ATORVASTATIN [Concomitant]
     Active Substance: ATORVASTATIN
  2. HYDROCHLOROTHIAZIDE. [Concomitant]
     Active Substance: HYDROCHLOROTHIAZIDE
  3. OMEPRAZOLE. [Concomitant]
     Active Substance: OMEPRAZOLE
  4. TUMS [Concomitant]
     Active Substance: CALCIUM CARBONATE
  5. LOSARTAN. [Concomitant]
     Active Substance: LOSARTAN
  6. ELIGARD [Concomitant]
     Active Substance: LEUPROLIDE ACETATE
  7. EZETIMIBE. [Concomitant]
     Active Substance: EZETIMIBE
  8. METOPROLOL TARTRATE. [Concomitant]
     Active Substance: METOPROLOL TARTRATE
  9. ERLEADA [Suspect]
     Active Substance: APALUTAMIDE
     Indication: PROSTATE CANCER
     Route: 048
     Dates: start: 20191216, end: 20210118

REACTIONS (1)
  - Disease progression [None]

NARRATIVE: CASE EVENT DATE: 20210119
